FAERS Safety Report 6965948-2 (Version None)
Quarter: 2010Q3

REPORT INFORMATION
  Report Type: 
  Country: None (occurrence: None)
  Receive Date: 20100903
  Receipt Date: 20100903
  Transmission Date: 20110219
  Serious: Yes (Other)
  Sender: FDA-Public Use
  Company Number: IT-MPIJNJ-2010-02664

PATIENT

DRUGS (2)
  1. VELCADE [Suspect]
     Indication: MULTIPLE MYELOMA
     Dosage: 2.3 MG, UNK
     Route: 042
     Dates: start: 20100503, end: 20100506
  2. DEXAMETHASONE [Concomitant]
     Dosage: 20 MG, UNK
     Dates: start: 20100503, end: 20100507

REACTIONS (4)
  - AGITATION [None]
  - CARDIAC FAILURE [None]
  - DYSPNOEA [None]
  - ORTHOPNOEA [None]
